FAERS Safety Report 18819952 (Version 1)
Quarter: 2021Q1

REPORT INFORMATION
  Report Type: Spontaneous
  Country: US (occurrence: US)
  Receive Date: 20210202
  Receipt Date: 20210202
  Transmission Date: 20210419
  Serious: Yes (Other)
  Sender: FDA-Public Use
  Company Number: US-ALVOGEN-2021-ALVOGEN-116289

PATIENT
  Age: 66 Year
  Sex: Female
  Weight: 90.72 kg

DRUGS (3)
  1. BYDUREON [Suspect]
     Active Substance: EXENATIDE
     Indication: BLOOD GLUCOSE ABNORMAL
  2. LISINOPRIL. [Suspect]
     Active Substance: LISINOPRIL
     Indication: BLOOD PRESSURE MEASUREMENT
     Dates: start: 202101
  3. AMLODIPINE [Concomitant]
     Active Substance: AMLODIPINE BESYLATE
     Indication: BLOOD PRESSURE MEASUREMENT
     Dates: start: 202101

REACTIONS (3)
  - Swollen tongue [Recovered/Resolved]
  - Blood glucose increased [Unknown]
  - Anaphylactic shock [Recovered/Resolved]

NARRATIVE: CASE EVENT DATE: 202101
